FAERS Safety Report 13951790 (Version 1)
Quarter: 2017Q3

REPORT INFORMATION
  Report Type: Spontaneous
  Country: US (occurrence: US)
  Receive Date: 20170908
  Receipt Date: 20170908
  Transmission Date: 20171128
  Serious: Yes (Other)
  Sender: FDA-Public Use
  Company Number: US-IMPAX LABORATORIES, INC-2017-IPXL-02588

PATIENT
  Age: 14 Year
  Sex: Female

DRUGS (5)
  1. PROPRANOLOL HYDROCHLORIDE IR [Suspect]
     Active Substance: PROPRANOLOL HYDROCHLORIDE
     Indication: PRODUCT USED FOR UNKNOWN INDICATION
     Dosage: UNK
     Route: 065
  2. INSULIN [Suspect]
     Active Substance: INSULIN NOS
     Indication: TYPE 1 DIABETES MELLITUS
     Dosage: UNK
     Route: 065
  3. PROPYLTHIOURACIL. [Suspect]
     Active Substance: PROPYLTHIOURACIL
     Indication: HYPERTHYROIDISM
     Dosage: 5 MG/KG, DAILY
     Route: 065
  4. METHIMAZOLE. [Suspect]
     Active Substance: METHIMAZOLE
     Indication: HYPERTHYROIDISM
     Dosage: 0.7 MG/KG, DAILY
     Route: 065
  5. I-131 IODINATED ALBUMIN [Concomitant]
     Indication: BASEDOW^S DISEASE
     Dosage: 18 MCI, UNK
     Route: 065

REACTIONS (5)
  - Type 1 diabetes mellitus [Recovering/Resolving]
  - Arthritis [Unknown]
  - Drug administered to patient of inappropriate age [Unknown]
  - Product use issue [Unknown]
  - Hypoglycaemia [Recovered/Resolved]
